FAERS Safety Report 18858256 (Version 1)
Quarter: 2021Q1

REPORT INFORMATION
  Report Type: Spontaneous
  Country: US (occurrence: US)
  Receive Date: 20210205
  Receipt Date: 20210205
  Transmission Date: 20210420
  Serious: No
  Sender: FDA-Public Use
  Company Number: None

PATIENT
  Age: 57 Year
  Sex: Female
  Weight: 84.37 kg

DRUGS (1)
  1. AMLODIPINE/OLMESARTAN [Suspect]
     Active Substance: AMLODIPINE BESYLATE\OLMESARTAN MEDOXOMIL
     Indication: HYPERTENSION
     Dosage: 5?20MG ONCE DAILY PO
     Route: 048
     Dates: start: 2003

REACTIONS (4)
  - Dizziness [None]
  - Drug ineffective [None]
  - Malaise [None]
  - Product substitution issue [None]
